FAERS Safety Report 21134894 (Version 1)
Quarter: 2022Q3

REPORT INFORMATION
  Report Type: Spontaneous
  Country: US (occurrence: US)
  Receive Date: 20220727
  Receipt Date: 20220727
  Transmission Date: 20221026
  Serious: No
  Sender: FDA-Public Use
  Company Number: US-JNJFOC-20220741273

PATIENT
  Sex: Male

DRUGS (1)
  1. OPSUMIT [Suspect]
     Active Substance: MACITENTAN
     Indication: Product used for unknown indication
     Dosage: TAKE 1 TABLET MY MOUTH DAILY
     Route: 048
     Dates: start: 20210930

REACTIONS (2)
  - Gastric disorder [Unknown]
  - Burning sensation [Unknown]
